FAERS Safety Report 5722861-6 (Version None)
Quarter: 2008Q2

REPORT INFORMATION
  Report Type: 
  Country: None (occurrence: None)
  Receive Date: 20080429
  Receipt Date: 20080103
  Transmission Date: 20081010
  Serious: No
  Sender: FDA-Public Use
  Company Number: US-ASTRAZENECA-2008UW00234

PATIENT
  Age: 91 Year
  Sex: Female
  Weight: 47.2 kg

DRUGS (7)
  1. NEXIUM [Suspect]
     Indication: GASTRIC DISORDER
     Route: 048
     Dates: start: 20080103
  2. ATENOLOL [Concomitant]
  3. AMLODIPINE [Concomitant]
  4. LORAZEPAM [Concomitant]
  5. HYDROXYUREA [Concomitant]
  6. ASPIRIN [Concomitant]
  7. PROCHLORPERAZINE [Concomitant]

REACTIONS (1)
  - NASAL DISCOMFORT [None]
